FAERS Safety Report 5699866-7 (Version None)
Quarter: 2008Q2

REPORT INFORMATION
  Report Type: 
  Country: None (occurrence: None)
  Receive Date: 20080410
  Receipt Date: 20080401
  Transmission Date: 20081010
  Serious: Yes (Hospitalization)
  Sender: FDA-Public Use
  Company Number: US-BAYER-200811164NA

PATIENT
  Age: 48 Year
  Weight: 91 kg

DRUGS (1)
  1. AVELOX [Suspect]
     Indication: BRONCHITIS
     Route: 048
     Dates: start: 20071226, end: 20080101

REACTIONS (2)
  - RHABDOMYOLYSIS [None]
  - SUDDEN HEARING LOSS [None]
